FAERS Safety Report 18443187 (Version 2)
Quarter: 2020Q4

REPORT INFORMATION
  Report Type: Report from Study
  Country: MX (occurrence: MX)
  Receive Date: 20201029
  Receipt Date: 20201216
  Transmission Date: 20210114
  Serious: Yes (Hospitalization, Other)
  Sender: FDA-Public Use
  Company Number: MX-SHIRE-MX202008603

PATIENT

DRUGS (9)
  1. IDURSULFASE [Suspect]
     Active Substance: IDURSULFASE
     Dosage: 3 VIALS,6MG/3ML, 1X/WEEK
     Route: 042
     Dates: start: 20200301
  2. IDURSULFASE [Suspect]
     Active Substance: IDURSULFASE
     Indication: MUCOPOLYSACCHARIDOSIS II
     Dosage: 3 VIALS,6MG/3ML, 1X/WEEK
     Route: 042
     Dates: start: 2013
  3. PARACETAMOL [Concomitant]
     Active Substance: ACETAMINOPHEN
     Indication: PREMEDICATION
     Dosage: 5 MILLILITER, 1X/WEEK
     Route: 048
     Dates: start: 2013
  4. IDURSULFASE [Suspect]
     Active Substance: IDURSULFASE
     Dosage: 3 VIALS,6MG/3ML, 1X/WEEK
     Route: 042
     Dates: start: 20200322
  5. DIPHENHYDRAMINE. [Concomitant]
     Active Substance: DIPHENHYDRAMINE
     Indication: PREMEDICATION
     Dosage: 5 MILLILITER, 1X/WEEK
     Route: 048
     Dates: start: 2013
  6. SALBUTAMOL [Concomitant]
     Active Substance: ALBUTEROL
     Indication: DYSPNOEA
  7. IDURSULFASE [Suspect]
     Active Substance: IDURSULFASE
     Dosage: 3 VIALS,6MG/3ML, 1X/WEEK
     Route: 042
     Dates: start: 20200308
  8. IDURSULFASE [Suspect]
     Active Substance: IDURSULFASE
     Dosage: 3 VIALS,6MG/3ML, 1X/WEEK
     Route: 042
     Dates: start: 20200405
  9. SALBUTAMOL [Concomitant]
     Active Substance: ALBUTEROL
     Indication: PRODUCTIVE COUGH
     Route: 065

REACTIONS (10)
  - Product dose omission issue [Not Recovered/Not Resolved]
  - Sinusitis [Recovered/Resolved]
  - Cough [Recovered/Resolved]
  - Inappropriate schedule of product administration [Unknown]
  - Seizure [Recovered/Resolved]
  - Product availability issue [Not Recovered/Not Resolved]
  - Abscess limb [Not Recovered/Not Resolved]
  - Pyrexia [Recovered/Resolved]
  - Product use in unapproved therapeutic environment [Recovered/Resolved]
  - Illness [Recovered/Resolved]

NARRATIVE: CASE EVENT DATE: 20200223
